FAERS Safety Report 4663796-X (Version None)
Quarter: 2005Q2

REPORT INFORMATION
  Report Type: 
  Country: None (occurrence: None)
  Receive Date: 20050516
  Receipt Date: 20050503
  Transmission Date: 20051028
  Serious: Yes (Hospitalization, Other)
  Sender: FDA-Public Use
  Company Number: 2005070893

PATIENT
  Age: 33 Year
  Sex: Female

DRUGS (2)
  1. BEXTRA [Suspect]
     Indication: PAIN
     Dosage: ORAL
     Route: 048
  2. FUROSEMIDE [Suspect]
     Indication: JOINT SWELLING
     Dosage: ORAL
     Route: 048

REACTIONS (4)
  - HIP SURGERY [None]
  - OVERDOSE [None]
  - RENAL FAILURE [None]
  - WRONG TECHNIQUE IN DRUG USAGE PROCESS [None]
